FAERS Safety Report 19449527 (Version 4)
Quarter: 2021Q3

REPORT INFORMATION
  Report Type: Spontaneous
  Country: DE (occurrence: DE)
  Receive Date: 20210622
  Receipt Date: 20210707
  Transmission Date: 20211014
  Serious: Yes (Other)
  Sender: FDA-Public Use
  Company Number: NVSC2021DE129033

PATIENT
  Age: 54 Year
  Sex: Female
  Weight: 79 kg

DRUGS (12)
  1. HISTAKUT [Concomitant]
     Active Substance: DIMETHINDENE MALEATE
     Indication: PRODUCT USED FOR UNKNOWN INDICATION
     Dosage: BEFORE INFUSION OF TRASTUZUMAB
     Route: 042
  2. PANTOPRAZOLE [Concomitant]
     Active Substance: PANTOPRAZOLE
     Indication: PRODUCT USED FOR UNKNOWN INDICATION
     Route: 065
  3. DOCETAXEL. [Suspect]
     Active Substance: DOCETAXEL
     Dosage: UNK
     Route: 065
     Dates: start: 20210330
  4. DEXAMETASON [Concomitant]
     Active Substance: DEXAMETHASONE
     Indication: PRODUCT USED FOR UNKNOWN INDICATION
     Dosage: 8 MG (BEFORE INFUSION OF TRASTUZUMAB, PERJETA FOR 15 MINUTES)
     Route: 065
  5. GRANISETRON [Concomitant]
     Active Substance: GRANISETRON
     Indication: PREMEDICATION
     Dosage: AMPULE
     Route: 042
  6. FEBUXOSTAT. [Concomitant]
     Active Substance: FEBUXOSTAT
     Indication: PRODUCT USED FOR UNKNOWN INDICATION
     Route: 065
  7. LAXOFALK [Concomitant]
     Indication: PRODUCT USED FOR UNKNOWN INDICATION
     Route: 065
  8. PERTUZUMAB. [Suspect]
     Active Substance: PERTUZUMAB
     Indication: BREAST CANCER METASTATIC
     Dosage: ON THE FIRST DAY OF THE FIRST CYCLE
     Route: 042
     Dates: start: 20210325, end: 20210325
  9. TORASEMIDE [Concomitant]
     Active Substance: TORSEMIDE
     Indication: PRODUCT USED FOR UNKNOWN INDICATION
     Route: 065
  10. DOCETAXEL. [Suspect]
     Active Substance: DOCETAXEL
     Indication: BREAST CANCER METASTATIC
     Dosage: UNK
     Route: 065
     Dates: start: 20210325, end: 20210325
  11. DOCETAXEL. [Suspect]
     Active Substance: DOCETAXEL
     Dosage: UNK
     Route: 065
     Dates: start: 20210326, end: 20210326
  12. TRASTUZUMAB. [Suspect]
     Active Substance: TRASTUZUMAB
     Indication: BREAST CANCER METASTATIC
     Dosage: ON THE SECOND DAY OF THE FIRST CYCLE420 MG
     Route: 042
     Dates: start: 20210325, end: 2021

REACTIONS (9)
  - Metastases to bone marrow [Unknown]
  - Infusion related reaction [Recovering/Resolving]
  - Haemolytic anaemia [Recovered/Resolved]
  - Asthenia [Unknown]
  - Acute hepatic failure [Recovered/Resolved]
  - Dyspnoea [Unknown]
  - Acute kidney injury [Recovered/Resolved]
  - Circulatory collapse [Unknown]
  - Folate deficiency [Unknown]

NARRATIVE: CASE EVENT DATE: 20210325
